FAERS Safety Report 11581814 (Version 1)
Quarter: 2015Q4

REPORT INFORMATION
  Report Type: Spontaneous
  Country: US (occurrence: US)
  Receive Date: 20151001
  Receipt Date: 20151001
  Transmission Date: 20160304
  Serious: No
  Sender: FDA-Public Use
  Company Number: US-ROCHE-684926

PATIENT
  Sex: Female

DRUGS (7)
  1. KARIVA [Concomitant]
     Active Substance: DESOGESTREL\ETHINYL ESTRADIOL
     Route: 065
  2. RIBAVIRIN. [Suspect]
     Active Substance: RIBAVIRIN
     Indication: HEPATITIS C
     Dosage: DIVIDED DOSES, PATIENT IN WEEK 5 OF THERAPY
     Route: 065
  3. SEROQUEL [Concomitant]
     Active Substance: QUETIAPINE FUMARATE
     Route: 065
  4. PEGASYS [Suspect]
     Active Substance: PEGINTERFERON ALFA-2A
     Indication: HEPATITIS C
     Dosage: PREFILLED SYRINGE, PATIENT IN WEEK 5 OF THERAPY
     Route: 065
  5. LAMICTAL [Concomitant]
     Active Substance: LAMOTRIGINE
     Route: 065
  6. SOMA [Concomitant]
     Active Substance: CARISOPRODOL
     Route: 065
  7. XANAX [Concomitant]
     Active Substance: ALPRAZOLAM
     Route: 065

REACTIONS (4)
  - Dyspepsia [Unknown]
  - Nausea [Unknown]
  - Abdominal discomfort [Unknown]
  - Glossodynia [Not Recovered/Not Resolved]
